FAERS Safety Report 9068073 (Version 1)
Quarter: 2013Q1

REPORT INFORMATION
  Report Type: Spontaneous
  Country: ES (occurrence: ES)
  Receive Date: 20130128
  Receipt Date: 20130128
  Transmission Date: 20140127
  Serious: Yes (Death)
  Sender: FDA-Public Use
  Company Number: ES-ROCHE-1183538

PATIENT
  Age: 74 Year
  Sex: Male
  Weight: 62 kg

DRUGS (4)
  1. XELODA [Suspect]
     Indication: COLON CANCER
     Route: 048
     Dates: start: 20120713
  2. SIMVASTATINE [Concomitant]
     Route: 048
  3. ENALAPRIL [Concomitant]
     Route: 048
  4. INSULIN [Concomitant]
     Route: 058

REACTIONS (1)
  - Intestinal ischaemia [Fatal]
